FAERS Safety Report 15517963 (Version 1)
Quarter: 2018Q4

REPORT INFORMATION
  Report Type: Spontaneous
  Country: US (occurrence: US)
  Receive Date: 20181011
  Receipt Date: 20181011
  Transmission Date: 20190205
  Serious: Yes (Hospitalization, Other)
  Sender: FDA-Public Use
  Company Number: None

PATIENT
  Age: 34 Year

DRUGS (24)
  1. OXYCODONE [Suspect]
     Active Substance: OXYCODONE
  2. NORCO [Suspect]
     Active Substance: ACETAMINOPHEN\HYDROCODONE BITARTRATE
  3. NEB SOLN [Concomitant]
  4. AMITRIPTYLINE [Concomitant]
     Active Substance: AMITRIPTYLINE
  5. VANTIN [Concomitant]
     Active Substance: CEFPODOXIME PROXETIL
  6. PLAGYL [Concomitant]
  7. LEVOTHYROXINE. [Concomitant]
     Active Substance: LEVOTHYROXINE
  8. LIDOCAINE TOP OINT [Concomitant]
  9. LETAIRIS [Suspect]
     Active Substance: AMBRISENTAN
     Indication: PULMONARY ARTERIAL HYPERTENSION
     Route: 048
     Dates: start: 201606, end: 201810
  10. ADEMPEA [Concomitant]
  11. METOCLOPRAMIDE. [Concomitant]
     Active Substance: METOCLOPRAMIDE
  12. PANTOPRAZOLE [Concomitant]
     Active Substance: PANTOPRAZOLE
  13. K-TAB [Concomitant]
     Active Substance: POTASSIUM CHLORIDE
  14. FLONASE [Concomitant]
     Active Substance: FLUTICASONE PROPIONATE
  15. ADVAIR DISKUS [Concomitant]
     Active Substance: FLUTICASONE PROPIONATE\SALMETEROL XINAFOATE
  16. ALBURERO [Concomitant]
  17. ALBUTEROL HFA [Concomitant]
     Active Substance: ALBUTEROL SULFATE
  18. VENLAFAXINE [Concomitant]
     Active Substance: VENLAFAXINE HYDROCHLORIDE
  19. VITAMIN D3 [Concomitant]
     Active Substance: CHOLECALCIFEROL
  20. DIGOXIN. [Concomitant]
     Active Substance: DIGOXIN
  21. LIDOCAINE TOP PATCH [Concomitant]
  22. SPIRONOLACTONC [Concomitant]
  23. WARFARIN [Concomitant]
     Active Substance: WARFARIN
  24. FUROAEMIDE [Concomitant]

REACTIONS (5)
  - Liver function test increased [None]
  - Fatigue [None]
  - Abdominal pain lower [None]
  - Diverticulitis [None]
  - Presyncope [None]

NARRATIVE: CASE EVENT DATE: 20181001
